FAERS Safety Report 8076174-0 (Version None)
Quarter: 2012Q1

REPORT INFORMATION
  Report Type: 
  Country: None (occurrence: None)
  Receive Date: 20120127
  Receipt Date: 20120123
  Transmission Date: 20120608
  Serious: Yes (Other)
  Sender: FDA-Public Use
  Company Number: BR-BAYER-2011-064590

PATIENT
  Age: 47 Year
  Sex: Female
  Weight: 62 kg

DRUGS (2)
  1. MIRENA [Suspect]
  2. MIRENA [Suspect]
     Indication: MENSTRUAL DISORDER
     Dosage: 20 MCG/24HR, CONT
     Route: 015
     Dates: start: 20110613, end: 20111215

REACTIONS (7)
  - DYSPAREUNIA [None]
  - VAGINAL HAEMORRHAGE [None]
  - URINARY TRACT INFECTION [None]
  - ABDOMINAL PAIN [None]
  - DEVICE EXPULSION [None]
  - ANAEMIA [None]
  - HEADACHE [None]
